FAERS Safety Report 4300498-3 (Version None)
Quarter: 2004Q1

REPORT INFORMATION
  Report Type: 
  Country: None (occurrence: None)
  Receive Date: 20040220
  Receipt Date: 20040205
  Transmission Date: 20041129
  Serious: Yes (Death)
  Sender: FDA-Public Use
  Company Number: PHRM2004FR00763

PATIENT
  Age: 76 Year
  Sex: Male

DRUGS (3)
  1. AK-FLUOR (NVO) [Suspect]
     Indication: ANGIOGRAM RETINA
     Route: 042
     Dates: start: 20040205, end: 20040205
  2. NEOSYNEPHRINE 10% (NVO) [Suspect]
     Indication: MACULAR DEGENERATION
     Route: 047
     Dates: start: 20040205, end: 20040205
  3. PREVISCAN [Concomitant]
     Indication: AORTIC VALVE DISEASE
     Route: 048

REACTIONS (6)
  - CARDIO-RESPIRATORY ARREST [None]
  - FALL [None]
  - LOSS OF CONSCIOUSNESS [None]
  - PHARMACEUTICAL PRODUCT COMPLAINT [None]
  - VERTIGO [None]
  - VOMITING [None]
